FAERS Safety Report 4796891-5 (Version None)
Quarter: 2005Q3

REPORT INFORMATION
  Report Type: 
  Country: None (occurrence: None)
  Receive Date: 20050916
  Receipt Date: 20050622
  Transmission Date: 20060218
  Serious: Yes (Other)
  Sender: FDA-Public Use
  Company Number: US-JNJFOC-20050106528

PATIENT
  Age: 32 Year
  Sex: Female
  Weight: 78.9259 kg

DRUGS (10)
  1. TOPAMAX [Suspect]
     Indication: CONVULSION
     Dosage: 100 MG,  IN 1 DAY, ORAL;  200 MG,  IN 1 DAY, ORAL
     Route: 048
  2. INDERAL [Concomitant]
  3. IMDUR [Concomitant]
  4. NITRO (GLYCERYL TRINITRATE) [Concomitant]
  5. SERAX [Concomitant]
  6. VITAMIN B-6 (B-KOMPLEX ^LECIVA^) [Concomitant]
  7. POTASSIUM (POTASSIUM) [Concomitant]
  8. VITAMIN C (ASCORBIC ACID) [Concomitant]
  9. VITAMIN E [Concomitant]
  10. RETIN-A (TRETINOIN) [Concomitant]

REACTIONS (2)
  - CONVULSION [None]
  - SLEEP APNOEA SYNDROME [None]
